FAERS Safety Report 25510480 (Version 1)
Quarter: 2025Q3

REPORT INFORMATION
  Report Type: Spontaneous
  Country: US (occurrence: US)
  Receive Date: 20250703
  Receipt Date: 20250703
  Transmission Date: 20251021
  Serious: No
  Sender: RADIUS PHARM
  Company Number: US-RADIUS HEALTH INC.-2024US003446

PATIENT
  Age: 66 Year
  Sex: Female

DRUGS (1)
  1. TYMLOS [Suspect]
     Active Substance: ABALOPARATIDE
     Indication: Osteoporosis
     Route: 058
     Dates: start: 202308

REACTIONS (7)
  - Rash pruritic [Not Recovered/Not Resolved]
  - Pain in extremity [Unknown]
  - Hair texture abnormal [Not Recovered/Not Resolved]
  - Dry skin [Not Recovered/Not Resolved]
  - Pruritus [Not Recovered/Not Resolved]
  - Sensitive skin [Unknown]
  - Pain of skin [Unknown]

NARRATIVE: CASE EVENT DATE: 20231001
